FAERS Safety Report 19788226 (Version 1)
Quarter: 2021Q3

REPORT INFORMATION
  Report Type: Spontaneous
  Country: US (occurrence: US)
  Receive Date: 20210903
  Receipt Date: 20210903
  Transmission Date: 20211014
  Serious: Yes (Hospitalization, Other)
  Sender: FDA-Public Use
  Company Number: US-PFIZER INC-202101120229

PATIENT
  Age: 46 Year
  Sex: Female
  Weight: 97.52 kg

DRUGS (3)
  1. GABAPENTIN. [Suspect]
     Active Substance: GABAPENTIN
     Indication: MULTIPLE SCLEROSIS
  2. GABAPENTIN. [Suspect]
     Active Substance: GABAPENTIN
     Indication: SEIZURE
  3. GABAPENTIN. [Suspect]
     Active Substance: GABAPENTIN
     Indication: CLUSTER HEADACHE
     Dosage: 600 MG, 3X/DAY
     Route: 048
     Dates: start: 202007

REACTIONS (2)
  - Cerebrovascular accident [Recovered/Resolved with Sequelae]
  - Aneurysm [Unknown]

NARRATIVE: CASE EVENT DATE: 20200928
